FAERS Safety Report 4487758-0 (Version None)
Quarter: 2004Q4

REPORT INFORMATION
  Report Type: 
  Country: None (occurrence: None)
  Receive Date: 20041028
  Receipt Date: 20041020
  Transmission Date: 20050328
  Serious: Yes (Other)
  Sender: FDA-Public Use
  Company Number: 200420537GDDC

PATIENT
  Age: 71 Year
  Sex: Male

DRUGS (3)
  1. NASACORT AQ [Suspect]
     Indication: NASAL CONGESTION
     Route: 055
     Dates: start: 20030101, end: 20041020
  2. SINTROM [Concomitant]
     Indication: ANTICOAGULANT THERAPY
     Dosage: DOSE: 3-4
     Route: 048
     Dates: start: 19930101
  3. FLOMAX [Concomitant]
     Indication: PROSTATIC DISORDER
     Dosage: DOSE: UNK
     Route: 048
     Dates: start: 20010101

REACTIONS (2)
  - DRUG INTERACTION [None]
  - INTERNATIONAL NORMALISED RATIO INCREASED [None]
